FAERS Safety Report 5515088-4 (Version None)
Quarter: 2007Q4

REPORT INFORMATION
  Report Type: 
  Country: None (occurrence: None)
  Receive Date: 20071113
  Receipt Date: 20061222
  Transmission Date: 20080405
  Serious: No
  Sender: FDA-Public Use
  Company Number: A0632589A

PATIENT
  Age: 76 Year
  Sex: Male

DRUGS (8)
  1. COREG [Suspect]
     Dosage: 3.125MG TWICE PER DAY
     Route: 048
     Dates: start: 20060928
  2. ACEON [Concomitant]
  3. LISINOPRIL [Concomitant]
  4. PLAVIX [Concomitant]
  5. ASPIRIN [Concomitant]
  6. NEXIUM [Concomitant]
  7. GLUCOSAMINE [Concomitant]
  8. MULTI-VITAMIN [Concomitant]

REACTIONS (4)
  - ABDOMINAL PAIN UPPER [None]
  - BLOOD PRESSURE INCREASED [None]
  - DRUG INEFFECTIVE [None]
  - WEIGHT DECREASED [None]
